FAERS Safety Report 10610365 (Version 1)
Quarter: 2014Q4

REPORT INFORMATION
  Report Type: Spontaneous
  Country: AE (occurrence: None)
  Receive Date: 20141124
  Receipt Date: 20141124
  Transmission Date: 20150529
  Serious: Yes (Hospitalization)
  Sender: FDA-Public Use
  Company Number: IMP_08203_2014

PATIENT
  Age: 19 Year
  Sex: Male

DRUGS (1)
  1. METFORMIN HCL (METFORMIN HCL) (NOT SPECIFIED) [Suspect]
     Active Substance: METFORMIN HYDROCHLORIDE
     Indication: TYPE 2 DIABETES MELLITUS

REACTIONS (1)
  - Pancreatitis acute [None]
